FAERS Safety Report 20129138 (Version 1)
Quarter: 2021Q4

REPORT INFORMATION
  Report Type: Spontaneous
  Country: US (occurrence: US)
  Receive Date: 20211130
  Receipt Date: 20211130
  Transmission Date: 20220303
  Serious: Yes (Hospitalization)
  Sender: FDA-Public Use
  Company Number: US-SA-SAC20211124001350

PATIENT
  Age: 56 Year
  Sex: Female

DRUGS (1)
  1. AUBAGIO [Suspect]
     Active Substance: TERIFLUNOMIDE
     Indication: Multiple sclerosis
     Dosage: 1 DF, QD
     Route: 048
     Dates: start: 20171016

REACTIONS (4)
  - Tibia fracture [Unknown]
  - Fibula fracture [Unknown]
  - Weight bearing difficulty [Unknown]
  - Fatigue [Unknown]

NARRATIVE: CASE EVENT DATE: 20210301
